FAERS Safety Report 15665689 (Version 1)
Quarter: 2018Q4

REPORT INFORMATION
  Report Type: Spontaneous
  Country: US (occurrence: US)
  Receive Date: 20181128
  Receipt Date: 20181128
  Transmission Date: 20190205
  Serious: No
  Sender: FDA-Public Use
  Company Number: US-PFIZER INC-2018474345

PATIENT
  Age: 59 Year
  Sex: Female
  Weight: 68.4 kg

DRUGS (5)
  1. LETROZOLE. [Concomitant]
     Active Substance: LETROZOLE
     Indication: BREAST CANCER METASTATIC
     Dosage: 2.5 MG, 1X/DAY (TINY PILL)
     Route: 048
     Dates: start: 201802
  2. TURMERIC [CURCUMA LONGA RHIZOME] [Concomitant]
     Indication: SUPPLEMENTATION THERAPY
     Dosage: UNK
  3. LETROZOLE. [Concomitant]
     Active Substance: LETROZOLE
     Indication: BREAST CANCER STAGE IV
  4. IBRANCE [Suspect]
     Active Substance: PALBOCICLIB
     Indication: BREAST CANCER STAGE IV
     Dosage: 125 MG, CYCLIC (ONCE DAILY, FOR 21 DAYS AND THEN 7 DAYS OFF)
     Route: 048
     Dates: start: 20180217, end: 201804
  5. IBRANCE [Suspect]
     Active Substance: PALBOCICLIB
     Dosage: 100 MG, UNK
     Dates: start: 201804

REACTIONS (2)
  - Tumour marker increased [Unknown]
  - White blood cell count decreased [Recovering/Resolving]

NARRATIVE: CASE EVENT DATE: 20180421
